FAERS Safety Report 17025493 (Version 2)
Quarter: 2019Q4

REPORT INFORMATION
  Report Type: Report from Study
  Country: PK (occurrence: PK)
  Receive Date: 20191113
  Receipt Date: 20191129
  Transmission Date: 20200122
  Serious: Yes (Other)
  Sender: FDA-Public Use
  Company Number: NVSC2019PK033080

PATIENT
  Age: 74 Year
  Sex: Female
  Weight: 70 kg

DRUGS (2)
  1. GLIVEC [Suspect]
     Active Substance: IMATINIB MESYLATE
     Indication: CHRONIC MYELOID LEUKAEMIA
     Dosage: 6 DF, QD
     Route: 048
     Dates: start: 20180925, end: 20191118
  2. GLIVEC [Suspect]
     Active Substance: IMATINIB MESYLATE
     Dosage: 4 DF, QD
     Route: 048
     Dates: start: 20191119

REACTIONS (4)
  - Pancytopenia [Not Recovered/Not Resolved]
  - Skin exfoliation [Unknown]
  - Peripheral swelling [Unknown]
  - Bicytopenia [Unknown]

NARRATIVE: CASE EVENT DATE: 20191106
